FAERS Safety Report 7426331-9 (Version None)
Quarter: 2011Q2

REPORT INFORMATION
  Report Type: 
  Country: None (occurrence: None)
  Receive Date: 20110420
  Receipt Date: 20110412
  Transmission Date: 20111010
  Serious: Yes (Other)
  Sender: FDA-Public Use
  Company Number: B0713256A

PATIENT
  Sex: Female
  Weight: 49 kg

DRUGS (10)
  1. GRAN [Concomitant]
     Dates: start: 20081025, end: 20081103
  2. DAIPHEN [Concomitant]
     Dosage: 1IUAX PER DAY
     Route: 048
     Dates: start: 20081020, end: 20081022
  3. FLUCONAZOLE [Concomitant]
     Dosage: 200MG PER DAY
     Route: 048
     Dates: start: 20081020
  4. CIPROFLOXACIN HCL [Concomitant]
     Dosage: 600MG PER DAY
     Route: 048
     Dates: start: 20081020, end: 20081102
  5. ALLOPURINOL [Concomitant]
     Dosage: 200MG PER DAY
     Route: 048
     Dates: start: 20081020
  6. ALKERAN [Suspect]
     Indication: STEM CELL TRANSPLANT
     Dosage: 100MGM2 PER DAY
     Route: 042
     Dates: start: 20081021, end: 20081022
  7. DEXAMETHASONE [Concomitant]
     Dosage: 40MG PER DAY
     Dates: start: 20081021, end: 20081022
  8. ZOVIRAX [Concomitant]
     Dosage: 1000MG PER DAY
     Route: 048
     Dates: start: 20081020, end: 20081123
  9. RAMELTEON [Concomitant]
     Dosage: .3MG PER DAY
     Route: 042
     Dates: start: 20081021, end: 20081022
  10. FAMOTIDINE [Concomitant]
     Dosage: 40MG PER DAY
     Route: 048
     Dates: start: 20081020

REACTIONS (1)
  - FEBRILE NEUTROPENIA [None]
